FAERS Safety Report 4574246-6 (Version None)
Quarter: 2005Q1

REPORT INFORMATION
  Report Type: 
  Country: None (occurrence: None)
  Receive Date: 20050208
  Receipt Date: 20041112
  Transmission Date: 20050727
  Serious: No
  Sender: FDA-Public Use
  Company Number: US-GLAXOSMITHKLINE-A0533819A

PATIENT
  Sex: Female

DRUGS (3)
  1. PAXIL [Suspect]
     Indication: PANIC DISORDER
     Route: 048
  2. XANAX [Concomitant]
     Route: 065
  3. LAMICTAL [Concomitant]
     Route: 048

REACTIONS (4)
  - BALANCE DISORDER [None]
  - NIGHT SWEATS [None]
  - PANIC REACTION [None]
  - SEXUAL DYSFUNCTION [None]
